FAERS Safety Report 13598071 (Version 1)
Quarter: 2017Q2

REPORT INFORMATION
  Report Type: Spontaneous
  Country: NO (occurrence: NO)
  Receive Date: 20170531
  Receipt Date: 20170531
  Transmission Date: 20170830
  Serious: Yes (Other)
  Sender: FDA-Public Use
  Company Number: NO-TEVA-771055ACC

PATIENT
  Age: 25 Year
  Sex: Female

DRUGS (12)
  1. METHOTREXATE SODIUM. [Suspect]
     Active Substance: METHOTREXATE SODIUM
     Indication: LEUKOCYTOSIS
     Dosage: INITIALLY UNTIL SPINAL FLUID IS BLANK
     Route: 037
     Dates: start: 20160628, end: 20160918
  2. CYTARABINE. [Suspect]
     Active Substance: CYTARABINE
     Indication: ACUTE LYMPHOCYTIC LEUKAEMIA
     Dosage: INITIALLY UNTIL SPINAL FLUID IS BLANK
     Route: 037
     Dates: start: 20160628, end: 201609
  3. METHOTREXATE SODIUM. [Suspect]
     Active Substance: METHOTREXATE SODIUM
     Indication: ACUTE LYMPHOCYTIC LEUKAEMIA
     Route: 037
     Dates: start: 20160919, end: 20161115
  4. CYTARABINE. [Suspect]
     Active Substance: CYTARABINE
     Indication: LEUKOCYTOSIS
     Route: 037
     Dates: start: 20160919, end: 20161115
  5. METHOTREXATE SODIUM. [Suspect]
     Active Substance: METHOTREXATE SODIUM
     Indication: ACUTE LYMPHOCYTIC LEUKAEMIA
     Dosage: INITIALLY UNTIL SPINAL FLUID IS BLANK
     Route: 037
     Dates: start: 20160628, end: 20160918
  6. METHOTREXATE SODIUM. [Suspect]
     Active Substance: METHOTREXATE SODIUM
     Indication: LEUKOCYTOSIS
     Route: 037
     Dates: start: 20160919, end: 20161115
  7. CYTARABINE. [Suspect]
     Active Substance: CYTARABINE
     Indication: ACUTE LYMPHOCYTIC LEUKAEMIA
     Route: 037
     Dates: start: 20160919, end: 20161115
  8. PREDNISOLONE. [Suspect]
     Active Substance: PREDNISOLONE
     Indication: LEUKOCYTOSIS
     Route: 037
     Dates: start: 20160919, end: 20161115
  9. PREDNISOLONE. [Suspect]
     Active Substance: PREDNISOLONE
     Indication: LEUKOCYTOSIS
     Dosage: INITIALLY UNTIL SPINAL FLUID IS BLANK
     Route: 037
     Dates: start: 20160628, end: 201609
  10. CYTARABINE. [Suspect]
     Active Substance: CYTARABINE
     Indication: LEUKOCYTOSIS
     Dosage: INITIALLY UNTIL SPINAL FLUID IS BLANK
     Route: 037
     Dates: start: 20160628, end: 201609
  11. PREDNISOLONE. [Suspect]
     Active Substance: PREDNISOLONE
     Indication: ACUTE LYMPHOCYTIC LEUKAEMIA
     Route: 037
     Dates: start: 20160919, end: 20161115
  12. PREDNISOLONE. [Suspect]
     Active Substance: PREDNISOLONE
     Indication: ACUTE LYMPHOCYTIC LEUKAEMIA
     Dosage: INITIALLY UNTIL SPINAL FLUID IS BLANK
     Route: 037
     Dates: start: 20160628, end: 201609

REACTIONS (1)
  - Myelopathy [Unknown]

NARRATIVE: CASE EVENT DATE: 20161115
